FAERS Safety Report 8961366 (Version 1)
Quarter: 2012Q4

REPORT INFORMATION
  Report Type: Report from Study
  Country: US (occurrence: US)
  Receive Date: 20121212
  Receipt Date: 20121212
  Transmission Date: 20130627
  Serious: Yes (Other)
  Sender: FDA-Public Use
  Company Number: US-BAXTER-2012BAX026360

PATIENT
  Age: 4 Year
  Sex: Male
  Weight: 16.82 kg

DRUGS (5)
  1. GAMMAGARD LIQUID [Suspect]
     Indication: HYPOGAMMAGLOBULINEMIA
     Route: 042
     Dates: start: 20121102
  2. FLOVENT [Concomitant]
     Indication: ASTHMA
  3. CLARITIN [Concomitant]
     Indication: DRUG USE FOR UNKNOWN INDICATION
     Route: 048
  4. ALBUTEROL [Concomitant]
     Indication: ASTHMA
  5. SEPTRA [Concomitant]
     Indication: ANTIBIOTIC THERAPY
     Dosage: 1 TSP (5ML)
     Route: 048

REACTIONS (3)
  - Headache [Recovered/Resolved]
  - Pyrexia [Recovered/Resolved]
  - Sinusitis [Not Recovered/Not Resolved]
